FAERS Safety Report 4469151-X (Version None)
Quarter: 2004Q4

REPORT INFORMATION
  Report Type: 
  Country: None (occurrence: None)
  Receive Date: 20041005
  Receipt Date: 20041005
  Transmission Date: 20050328
  Serious: No
  Sender: FDA-Public Use
  Company Number: None

PATIENT
  Age: 49 Year
  Sex: Male
  Weight: 63.05 kg

DRUGS (1)
  1. VIREAD [Suspect]
     Indication: HYPOPHOSPHATAEMIA
     Dosage: 300 MG PO QD
     Route: 048
     Dates: start: 20020509, end: 20030911

REACTIONS (4)
  - ATAXIA [None]
  - MUCOSAL DRYNESS [None]
  - MYALGIA [None]
  - PARAESTHESIA [None]
